FAERS Safety Report 9677839 (Version 1)
Quarter: 2013Q4

REPORT INFORMATION
  Report Type: Report from Study
  Country: US (occurrence: US)
  Receive Date: 20131108
  Receipt Date: 20131108
  Transmission Date: 20140711
  Serious: Yes (Hospitalization)
  Sender: FDA-Public Use
  Company Number: US-ABBVIE-13P-163-1164316-00

PATIENT
  Age: 43 Year
  Sex: Male
  Weight: 83.08 kg

DRUGS (5)
  1. HUMIRA [Suspect]
     Indication: COLITIS ULCERATIVE
     Dosage: DAY 1: 4 40MG INJECTIONS
     Route: 058
     Dates: start: 20131014, end: 20131014
  2. HUMIRA [Suspect]
     Dosage: DAY 15: 2 40MG INJECTIONS
     Route: 058
     Dates: start: 20131029, end: 20131029
  3. HUMIRA [Suspect]
     Route: 058
  4. PREDNISONE [Concomitant]
     Indication: PRODUCT USED FOR UNKNOWN INDICATION
     Dosage: CURRENTLY TAPERING DOWN
  5. ASACOL [Concomitant]
     Indication: PRODUCT USED FOR UNKNOWN INDICATION
     Dosage: 2 TABLETS DAILY

REACTIONS (2)
  - Grand mal convulsion [Unknown]
  - Colitis ulcerative [Unknown]
